FAERS Safety Report 6126427-8 (Version None)
Quarter: 2009Q1

REPORT INFORMATION
  Report Type: 
  Country: None (occurrence: None)
  Receive Date: 20090320
  Receipt Date: 20090316
  Transmission Date: 20090719
  Serious: Yes (Death, Life-Threatening)
  Sender: FDA-Public Use
  Company Number: JP-BAYER-200910231BYL

PATIENT
  Age: 75 Year
  Sex: Female

DRUGS (9)
  1. CIPROXAN-I.V. [Suspect]
     Indication: SEPSIS
     Dosage: TOTAL DAILY DOSE: 600 MG  UNIT DOSE: 300 MG
     Route: 041
     Dates: start: 20080215, end: 20080218
  2. ROCEPHIN [Concomitant]
     Dosage: TOTAL DAILY DOSE: 2 G
     Route: 041
     Dates: start: 20080218, end: 20080222
  3. VANCOMYCIN HYDROCHLORIDE [Concomitant]
     Route: 041
     Dates: start: 20080221, end: 20080229
  4. LASIX [Concomitant]
     Indication: OLIGURIA
     Route: 042
     Dates: start: 20080218
  5. PREDONINE [Concomitant]
     Indication: RHEUMATOID ARTHRITIS
     Dosage: TOTAL DAILY DOSE: 10 MG
     Route: 042
     Dates: start: 20080222, end: 20080301
  6. PREDONINE [Concomitant]
     Dosage: TOTAL DAILY DOSE: 10 MG
     Route: 048
     Dates: start: 20080215, end: 20080221
  7. BLOPRESS [Concomitant]
     Indication: RENAL FAILURE
     Dosage: TOTAL DAILY DOSE: 8 MG
     Route: 048
     Dates: start: 20080215, end: 20080221
  8. AMLODIN OD [Concomitant]
     Indication: HYPERTENSION
     Dosage: TOTAL DAILY DOSE: 5 MG
     Route: 048
     Dates: start: 20080215, end: 20080221
  9. FOSAMAC 35MG [Concomitant]
     Indication: OSTEOPOROSIS
     Dosage: UNIT DOSE: 35 MG
     Route: 048
     Dates: start: 20080220, end: 20080220

REACTIONS (1)
  - RENAL FAILURE ACUTE [None]
